FAERS Safety Report 16315028 (Version 2)
Quarter: 2019Q2

REPORT INFORMATION
  Report Type: Report from Study
  Country: CA (occurrence: CA)
  Receive Date: 20190515
  Receipt Date: 20190607
  Transmission Date: 20190711
  Serious: Yes (Death, Hospitalization, Other)
  Sender: FDA-Public Use
  Company Number: CA-APOPHARMA-2019AP013805

PATIENT
  Sex: Male
  Weight: 76 kg

DRUGS (1)
  1. FERRIPROX [Suspect]
     Active Substance: DEFERIPRONE
     Indication: THALASSAEMIA
     Dosage: 99 MG/KG, QD
     Route: 048
     Dates: start: 20130816, end: 20190416

REACTIONS (1)
  - Cardiac failure congestive [Fatal]
